FAERS Safety Report 9303242 (Version 1)
Quarter: 2012Q4

REPORT INFORMATION
  Report Type: Spontaneous
  Country: US (occurrence: None)
  Receive Date: 20121231
  Receipt Date: 20121231
  Transmission Date: 20130627
  Serious: Yes (Death)
  Sender: FDA-Public Use
  Company Number: ADR-2012UNK103

PATIENT

DRUGS (3)
  1. NEVIRAPINE [Suspect]
     Indication: ACQUIRED IMMUNO DEFICIENCY SYNDROME
     Route: 048
  2. ABACAVIR+LAMIVUDINE [Concomitant]
  3. EFAVIRENZ (SUSTIVA, EFV) [Concomitant]

REACTIONS (3)
  - Ectopic pregnancy [None]
  - Abortion induced [None]
  - Exposure during pregnancy [None]
